FAERS Safety Report 17902861 (Version 1)
Quarter: 2020Q2

REPORT INFORMATION
  Report Type: Spontaneous
  Country: CN (occurrence: CN)
  Receive Date: 20200616
  Receipt Date: 20200616
  Transmission Date: 20200714
  Serious: Yes (Hospitalization, Other)
  Sender: FDA-Public Use
  Company Number: NVSC2020CN166280

PATIENT
  Age: 54 Year
  Sex: Male

DRUGS (3)
  1. PARLODEL [Suspect]
     Active Substance: BROMOCRIPTINE MESYLATE
     Indication: PITUITARY TUMOUR BENIGN
     Dosage: 15 MG, UNKNOWN
     Route: 048
     Dates: start: 201705
  2. PARLODEL [Suspect]
     Active Substance: BROMOCRIPTINE MESYLATE
     Dosage: 15 MG, UNKNOWN
     Route: 048
  3. PARLODEL [Suspect]
     Active Substance: BROMOCRIPTINE MESYLATE
     Dosage: 7.5 MG, UNKNOWN
     Route: 048
     Dates: start: 201711

REACTIONS (2)
  - Acute kidney injury [Recovering/Resolving]
  - Retroperitoneal fibrosis [Recovering/Resolving]

NARRATIVE: CASE EVENT DATE: 20190816
